FAERS Safety Report 7124291-1 (Version None)
Quarter: 2010Q4

REPORT INFORMATION
  Report Type: 
  Country: None (occurrence: None)
  Receive Date: 20101126
  Receipt Date: 20101116
  Transmission Date: 20110411
  Serious: Yes (Other)
  Sender: FDA-Public Use
  Company Number: PHHY2010US42722

PATIENT
  Sex: Female

DRUGS (3)
  1. RECLAST [Suspect]
     Dosage: 5 MG, YEARLY
     Route: 042
     Dates: start: 20100112
  2. FISH OIL [Concomitant]
  3. NEURONTIN [Concomitant]

REACTIONS (9)
  - BLINDNESS TRANSIENT [None]
  - BONE PAIN [None]
  - DIARRHOEA [None]
  - INFLUENZA LIKE ILLNESS [None]
  - JOINT SWELLING [None]
  - MALAISE [None]
  - OSTEONECROSIS OF JAW [None]
  - PAIN IN JAW [None]
  - VOMITING [None]
